FAERS Safety Report 23042076 (Version 1)
Quarter: 2023Q4

REPORT INFORMATION
  Report Type: Spontaneous
  Country: ES (occurrence: ES)
  Receive Date: 20231008
  Receipt Date: 20231008
  Transmission Date: 20240110
  Serious: Yes (Other)
  Sender: FDA-Public Use
  Company Number: ES-UCBSA-2023046896

PATIENT
  Age: 51 Year
  Sex: Female
  Weight: 62.1 kg

DRUGS (4)
  1. LEVETIRACETAM [Suspect]
     Active Substance: LEVETIRACETAM
     Indication: Product used for unknown indication
     Dosage: 500 MILLIGRAM, 2X/DAY (BID)
     Route: 065
     Dates: start: 202202
  2. VIMPAT [Suspect]
     Active Substance: LACOSAMIDE
     Indication: Epilepsy
     Dosage: 100 MILLIGRAM, 2X/DAY (BID)
     Route: 065
     Dates: start: 202301
  3. VIMPAT [Suspect]
     Active Substance: LACOSAMIDE
     Dosage: 50 MILLIGRAM, 2X/DAY (BID)
     Route: 065
     Dates: start: 202202
  4. LEVOTHYROXINE SODIUM [Concomitant]
     Active Substance: LEVOTHYROXINE SODIUM
     Indication: Product used for unknown indication
     Dosage: 25 MICROGRAM, ONCE DAILY (QD)
     Route: 065
     Dates: start: 2022

REACTIONS (2)
  - Hypertonic bladder [Not Recovered/Not Resolved]
  - Bladder catheterisation [Not Recovered/Not Resolved]

NARRATIVE: CASE EVENT DATE: 20230101
